FAERS Safety Report 18997458 (Version 2)
Quarter: 2022Q3

REPORT INFORMATION
  Report Type: Other
  Country: US (occurrence: None)
  Receive Date: 20210311
  Receipt Date: 20220901
  Transmission Date: 20221027
  Serious: Yes (Other)
  Sender: FDA-Public Use
  Company Number: US-ROCHE-2783002

PATIENT
  Age: 72 Year
  Sex: Female

DRUGS (2)
  1. TOCILIZUMAB [Suspect]
     Active Substance: TOCILIZUMAB
     Indication: Acute graft versus host disease
     Dosage: ON D+27
     Route: 065
  2. PROTHROMBIN COMPLEX CONCENTRATE NOS [Concomitant]
     Active Substance: COAGULATION FACTOR IX HUMAN\COAGULATION FACTOR VII HUMAN\COAGULATION FACTOR X HUMAN\PROTHROMBIN

REACTIONS (3)
  - Ischaemic stroke [Unknown]
  - Hypofibrinogenaemia [Not Recovered/Not Resolved]
  - Haemorrhage [Unknown]
